FAERS Safety Report 13800923 (Version 1)
Quarter: 2017Q3

REPORT INFORMATION
  Report Type: Spontaneous
  Country: DK (occurrence: DK)
  Receive Date: 20170727
  Receipt Date: 20170727
  Transmission Date: 20171127
  Serious: Yes (Death, Hospitalization)
  Sender: FDA-Public Use
  Company Number: DK-PFIZER INC-1540185

PATIENT
  Age: 30 Year
  Sex: Female

DRUGS (10)
  1. IRON [Concomitant]
     Active Substance: IRON
     Indication: PRODUCT USED FOR UNKNOWN INDICATION
     Dosage: UNK
  2. FRAGMIN [Concomitant]
     Active Substance: DALTEPARIN SODIUM
     Indication: PRODUCT USED FOR UNKNOWN INDICATION
     Dosage: 1 KBQ, 1DF: 500 IE
  3. MORPHINE SULFATE. [Concomitant]
     Active Substance: MORPHINE SULFATE
     Indication: PRODUCT USED FOR UNKNOWN INDICATION
     Dosage: 5 MG, TOTAL DAILY DOSE/UNIT 5 MG PN
  4. MULTIVITAMIN /00097801/ [Concomitant]
     Active Substance: VITAMINS
     Indication: PRODUCT USED FOR UNKNOWN INDICATION
     Dosage: UNK
  5. CETUXIMAB. [Suspect]
     Active Substance: CETUXIMAB
     Indication: MALIGNANT GLIOMA
     Dosage: 250 MG/M2, UNK
     Route: 042
     Dates: start: 20071011, end: 20081030
  6. PANODIL [Concomitant]
     Active Substance: ACETAMINOPHEN
     Indication: PRODUCT USED FOR UNKNOWN INDICATION
     Dosage: 4 G, UNK
  7. IRINOTECAN HCL [Suspect]
     Active Substance: IRINOTECAN HYDROCHLORIDE
     Indication: MALIGNANT GLIOMA
     Dosage: 340 DF, UNK
     Route: 042
     Dates: start: 20071011, end: 20081030
  8. OXYNORM [Concomitant]
     Active Substance: OXYCODONE HYDROCHLORIDE
     Indication: PRODUCT USED FOR UNKNOWN INDICATION
     Dosage: 5 MG, TOTAL DAILY DOSE 5 MG PN, FREQ: TOTAL
  9. BEVACIZUMAB. [Suspect]
     Active Substance: BEVACIZUMAB
     Indication: MALIGNANT GLIOMA
     Dosage: 10 MG/KG, UNK
     Route: 042
     Dates: start: 20071011, end: 20081030
  10. OXYCONTIN [Concomitant]
     Active Substance: OXYCODONE HYDROCHLORIDE
     Indication: PRODUCT USED FOR UNKNOWN INDICATION
     Dosage: 20 MG, UNK

REACTIONS (5)
  - Fall [Unknown]
  - Cerebral infarction [Fatal]
  - Erysipelas [Unknown]
  - Femoral neck fracture [Recovered/Resolved with Sequelae]
  - Respiratory distress [Recovered/Resolved]

NARRATIVE: CASE EVENT DATE: 20081030
